FAERS Safety Report 17444753 (Version 1)
Quarter: 2020Q1

REPORT INFORMATION
  Report Type: Spontaneous
  Country: GB (occurrence: GB)
  Receive Date: 20200221
  Receipt Date: 20200221
  Transmission Date: 20200409
  Serious: Yes (Life-Threatening)
  Sender: FDA-Public Use
  Company Number: GB-TEVA-2020-GB-1188888

PATIENT
  Age: 61 Year
  Sex: Female
  Weight: 60 kg

DRUGS (3)
  1. THIAMINE. [Concomitant]
     Active Substance: THIAMINE
     Dosage: 100 MG
     Route: 048
  2. DISULFIRAM. [Suspect]
     Active Substance: DISULFIRAM
     Indication: ALCOHOLISM
     Dosage: 100 MG
     Route: 048
  3. DISULFIRAM. [Suspect]
     Active Substance: DISULFIRAM
     Dosage: 200 MG
     Route: 048
     Dates: start: 20191018, end: 20191118

REACTIONS (1)
  - Blood pressure increased [Recovering/Resolving]
